FAERS Safety Report 16017182 (Version 1)
Quarter: 2019Q1

REPORT INFORMATION
  Report Type: Spontaneous
  Country: US (occurrence: US)
  Receive Date: 20190131
  Receipt Date: 20190131
  Transmission Date: 20190418
  Serious: No
  Sender: FDA-Public Use
  Company Number: None

PATIENT
  Age: 61 Year
  Sex: Female

DRUGS (1)
  1. LETAIRIS [Suspect]
     Active Substance: AMBRISENTAN
     Indication: PULMONARY ARTERIAL HYPERTENSION
     Dosage: 07 JAN 2019 TO 30 JAN 2018
     Route: 048
     Dates: start: 20190107

REACTIONS (3)
  - Dyspnoea [None]
  - Polyuria [None]
  - Weight increased [None]

NARRATIVE: CASE EVENT DATE: 20190116
